FAERS Safety Report 18257940 (Version 1)
Quarter: 2020Q3

REPORT INFORMATION
  Report Type: Spontaneous
  Country: US (occurrence: US)
  Receive Date: 20200911
  Receipt Date: 20200911
  Transmission Date: 20201103
  Serious: Yes (Other)
  Sender: FDA-Public Use
  Company Number: US-PFIZER INC-2020349433

PATIENT
  Age: 60 Year
  Sex: Female
  Weight: 126 kg

DRUGS (4)
  1. WELLBUTRIN [Concomitant]
     Active Substance: BUPROPION HYDROCHLORIDE
     Indication: DEPRESSION
     Dosage: 300 MG, DAILY
  2. EFFEXOR XR [Suspect]
     Active Substance: VENLAFAXINE HYDROCHLORIDE
     Indication: ANXIETY
  3. EFFEXOR XR [Suspect]
     Active Substance: VENLAFAXINE HYDROCHLORIDE
     Indication: DEPRESSION
     Dosage: 75 MG, 1X/DAY [TAKE 1 CAPSULE BY MOUTH ONCE A DAY]
     Route: 048
  4. FLECTOR [Concomitant]
     Active Substance: DICLOFENAC EPOLAMINE
     Dosage: UNK, 2X/DAY [1.3% PATCH 12 HOUR]

REACTIONS (9)
  - Pelvic pain [Not Recovered/Not Resolved]
  - Neck pain [Unknown]
  - Tearfulness [Recovering/Resolving]
  - Spinal osteoarthritis [Unknown]
  - Suicidal ideation [Unknown]
  - Back pain [Unknown]
  - Abdominal pain lower [Not Recovered/Not Resolved]
  - Groin pain [Unknown]
  - Insomnia [Unknown]

NARRATIVE: CASE EVENT DATE: 2020
